FAERS Safety Report 6107588-3 (Version None)
Quarter: 2009Q1

REPORT INFORMATION
  Report Type: 
  Country: None (occurrence: None)
  Receive Date: 20090305
  Receipt Date: 20090222
  Transmission Date: 20090719
  Serious: Yes (Other)
  Sender: FDA-Public Use
  Company Number: CHPA2009US05351

PATIENT
  Age: 20 Year
  Sex: Female

DRUGS (5)
  1. THERAFLU FLU AND CHEST CONGESTION WITHOUT PSE (NCH) (GUAIFENESIN, PARA [Suspect]
     Indication: COUGH
     Dosage: ORAL;1 DF,ORAL;0.5 DF,ORAL
     Route: 048
     Dates: start: 20090222
  2. THERAFLU FLU AND CHEST CONGESTION WITHOUT PSE (NCH) (GUAIFENESIN, PARA [Suspect]
     Indication: COUGH
     Dosage: ORAL;1 DF,ORAL;0.5 DF,ORAL
     Route: 048
     Dates: start: 20090222
  3. MIRALAX [Concomitant]
  4. CONDAMINE (NO INGREDIENTS/SUBSTANCES) [Concomitant]
  5. SINGULAIR [Concomitant]

REACTIONS (6)
  - ASTHMA [None]
  - COUGH [None]
  - DRY THROAT [None]
  - LARYNGITIS [None]
  - SPUTUM RETENTION [None]
  - THYROIDECTOMY [None]
